FAERS Safety Report 5064275-0 (Version None)
Quarter: 2006Q3

REPORT INFORMATION
  Report Type: 
  Country: None (occurrence: None)
  Receive Date: 20060728
  Receipt Date: 20060714
  Transmission Date: 20061208
  Serious: Yes (Other)
  Sender: FDA-Public Use
  Company Number: TW-AMGEN-US180577

PATIENT
  Age: 80 Year
  Sex: Male

DRUGS (2)
  1. ARANESP [Suspect]
     Indication: RENAL FAILURE CHRONIC
     Dates: start: 20041023, end: 20041023
  2. EPREX [Suspect]
     Route: 058
     Dates: start: 20031225, end: 20041116

REACTIONS (2)
  - ANAEMIA [None]
  - ANTI-ERYTHROCYTE ANTIBODY NEGATIVE [None]
